FAERS Safety Report 8867211 (Version 1)
Quarter: 2012Q4

REPORT INFORMATION
  Report Type: 
  Country: US (occurrence: US)
  Receive Date: 20121025
  Receipt Date: 20121025
  Transmission Date: 20130627
  Serious: No
  Sender: FDA-Public Use
  Company Number: US-AMGEN-USASP2012015500

PATIENT
  Age: 59 Year
  Sex: Female

DRUGS (3)
  1. ENBREL [Suspect]
     Indication: RHEUMATOID ARTHRITIS
     Dosage: 50 mg, qwk
     Route: 058
  2. SYNTHROID [Concomitant]
     Dosage: 25 mug, UNK
  3. ZEGERID                            /00661201/ [Concomitant]
     Dosage: UNK

REACTIONS (3)
  - Erythema [Unknown]
  - Joint swelling [Unknown]
  - Joint warmth [Unknown]
